FAERS Safety Report 5949466-6 (Version None)
Quarter: 2008Q4

REPORT INFORMATION
  Report Type: 
  Country: None (occurrence: None)
  Receive Date: 20081112
  Receipt Date: 20081104
  Transmission Date: 20090506
  Serious: Yes (Life-Threatening, Hospitalization)
  Sender: FDA-Public Use
  Company Number: PHHY2008US27165

PATIENT
  Sex: Female

DRUGS (2)
  1. CLOZARIL [Suspect]
     Indication: BIPOLAR DISORDER
     Dosage: 300 MG
     Dates: start: 20080818
  2. CLOZARIL [Suspect]
     Dosage: 50 MG, HS

REACTIONS (9)
  - ACTIVITIES OF DAILY LIVING IMPAIRED [None]
  - ASTHENIA [None]
  - DIZZINESS [None]
  - DROOLING [None]
  - ERYTHEMA [None]
  - HOSPITALISATION [None]
  - INFLUENZA LIKE ILLNESS [None]
  - PYREXIA [None]
  - SUICIDAL BEHAVIOUR [None]
